FAERS Safety Report 17301181 (Version 1)
Quarter: 2020Q1

REPORT INFORMATION
  Report Type: Spontaneous
  Country: CN (occurrence: CN)
  Receive Date: 20200122
  Receipt Date: 20200122
  Transmission Date: 20200409
  Serious: Yes (Hospitalization)
  Sender: FDA-Public Use
  Company Number: NVSC2020CN013218

PATIENT
  Age: 85 Year
  Sex: Female

DRUGS (1)
  1. ISOMONIT [Suspect]
     Active Substance: ISOSORBIDE MONONITRATE
     Indication: HYPERTENSIVE HEART DISEASE
     Dosage: 60 MG, QD
     Route: 048
     Dates: start: 20191209, end: 20191209

REACTIONS (2)
  - Headache [Recovering/Resolving]
  - Chest discomfort [Recovering/Resolving]

NARRATIVE: CASE EVENT DATE: 20191210
